FAERS Safety Report 4932639-9 (Version None)
Quarter: 2006Q1

REPORT INFORMATION
  Report Type: 
  Country: None (occurrence: None)
  Receive Date: 20060301
  Receipt Date: 20060217
  Transmission Date: 20060701
  Serious: No
  Sender: FDA-Public Use
  Company Number: HQWYE156727DEC05

PATIENT
  Age: 73 Year
  Sex: Female

DRUGS (6)
  1. RALOXIFENE [Suspect]
     Indication: OSTEOPOROSIS
     Dosage: 60 MG ORAL
     Route: 048
     Dates: start: 20030313, end: 20051222
  2. BECLOMETHASONE DIPROPIONATE [Concomitant]
  3. DIPYRONE                     (METAMIZOLE SODIUM) [Concomitant]
  4. ADIPHENINE                        (ADIPHENINE) [Concomitant]
  5. PROMETHAZINE [Concomitant]
  6. DICLOFENAC POTASSIUM [Concomitant]

REACTIONS (2)
  - ENDOMETRIAL CANCER [None]
  - VAGINAL HAEMORRHAGE [None]
